FAERS Safety Report 6714430-6 (Version None)
Quarter: 2010Q2

REPORT INFORMATION
  Report Type: 
  Country: None (occurrence: None)
  Receive Date: 20100506
  Receipt Date: 20100503
  Transmission Date: 20101027
  Serious: Yes (Other)
  Sender: FDA-Public Use
  Company Number: US-GENENTECH-297973

PATIENT
  Sex: Female
  Weight: 25 kg

DRUGS (10)
  1. XOLAIR [Suspect]
     Indication: ASTHMA
     Dosage: 375 MG, Q14D
     Route: 058
     Dates: start: 20090820, end: 20091216
  2. NUTROPIN [Suspect]
     Indication: BODY HEIGHT BELOW NORMAL
  3. ALBUTEROL [Concomitant]
     Indication: DRUG USE FOR UNKNOWN INDICATION
  4. ASMANEX TWISTHALER [Concomitant]
     Indication: DRUG USE FOR UNKNOWN INDICATION
  5. XOPENEX [Concomitant]
     Indication: DRUG USE FOR UNKNOWN INDICATION
  6. ALLEGRA [Concomitant]
     Indication: DRUG USE FOR UNKNOWN INDICATION
  7. BACTRIM [Concomitant]
     Indication: DRUG USE FOR UNKNOWN INDICATION
  8. PRED FORTE [Concomitant]
     Indication: DRUG USE FOR UNKNOWN INDICATION
  9. XYZAL [Concomitant]
     Indication: DRUG USE FOR UNKNOWN INDICATION
  10. PREDNISONE [Concomitant]
     Indication: DRUG USE FOR UNKNOWN INDICATION

REACTIONS (2)
  - ASTHMA [None]
  - SERUM SICKNESS [None]
